FAERS Safety Report 10017732 (Version 2)
Quarter: 2014Q1

REPORT INFORMATION
  Report Type: Spontaneous
  Country: US (occurrence: US)
  Receive Date: 20140318
  Receipt Date: 20140318
  Transmission Date: 20141002
  Serious: Yes (Other)
  Sender: FDA-Public Use
  Company Number: US-BRISTOL-MYERS SQUIBB COMPANY-18728881

PATIENT
  Age: 68 Year
  Sex: Male

DRUGS (2)
  1. ERBITUX [Suspect]
     Indication: RECTAL CANCER
     Dosage: MAINTENANCE DOSE AT 500 MG
     Route: 042
     Dates: start: 20130311
  2. BENADRYL [Concomitant]
     Dosage: IVPB
     Route: 042

REACTIONS (1)
  - Chills [Recovered/Resolved]
